FAERS Safety Report 20723956 (Version 5)
Quarter: 2022Q3

REPORT INFORMATION
  Report Type: Report from Study
  Country: US (occurrence: US)
  Receive Date: 20220419
  Receipt Date: 20220826
  Transmission Date: 20221027
  Serious: Yes (Other)
  Sender: FDA-Public Use
  Company Number: US-NOVARTISPH-NVSC2022US084344

PATIENT
  Sex: Male

DRUGS (1)
  1. TABRECTA [Suspect]
     Active Substance: CAPMATINIB
     Indication: Lung neoplasm malignant
     Dosage: 400 MG, BID
     Route: 048
     Dates: start: 20220323

REACTIONS (10)
  - Choking [Unknown]
  - Headache [Unknown]
  - Dizziness [Unknown]
  - Subdural effusion [Unknown]
  - Peripheral swelling [Not Recovered/Not Resolved]
  - Nausea [Unknown]
  - Cough [Unknown]
  - Oedema peripheral [Unknown]
  - Pleural effusion [Unknown]
  - Product dose omission issue [Unknown]
